FAERS Safety Report 6779511-X (Version None)
Quarter: 2010Q2

REPORT INFORMATION
  Report Type: 
  Country: None (occurrence: None)
  Receive Date: 20100618
  Receipt Date: 20100607
  Transmission Date: 20101027
  Serious: Yes (Hospitalization, Other)
  Sender: FDA-Public Use
  Company Number: US-ELI_LILLY_AND_COMPANY-US201003004575

PATIENT
  Sex: Female
  Weight: 99.773 kg

DRUGS (5)
  1. BYETTA [Suspect]
     Indication: TYPE 2 DIABETES MELLITUS
     Dosage: 5 UG, 2/D
     Route: 058
     Dates: start: 20060802, end: 20060913
  2. BYETTA [Suspect]
     Dosage: 10 UG, 2/D
     Route: 058
     Dates: start: 20060913, end: 20100208
  3. METFORMIN [Concomitant]
     Indication: DIABETES MELLITUS
     Dosage: 1 D/F, 3/D
     Dates: start: 20050101, end: 20100208
  4. LOVASTATIN [Concomitant]
     Indication: BLOOD CHOLESTEROL INCREASED
     Dosage: 40 MG, UNK
     Dates: start: 20060101
  5. GLIMEPIRIDE [Concomitant]
     Indication: DIABETES MELLITUS
     Dosage: 0.5 MG, DAILY (1/D)
     Dates: start: 20080521

REACTIONS (4)
  - NEPHROLITHIASIS [None]
  - PANCREATITIS ACUTE [None]
  - PYELONEPHRITIS [None]
  - RENAL FAILURE ACUTE [None]
